FAERS Safety Report 23658869 (Version 1)
Quarter: 2024Q1

REPORT INFORMATION
  Report Type: Spontaneous
  Country: CO (occurrence: CO)
  Receive Date: 20240321
  Receipt Date: 20240321
  Transmission Date: 20240410
  Serious: Yes (Other)
  Sender: FDA-Public Use
  Company Number: CO-GLAXOSMITHKLINE-CO2024AMR022872

PATIENT

DRUGS (1)
  1. BELIMUMAB [Suspect]
     Active Substance: BELIMUMAB
     Indication: Systemic lupus erythematosus
     Dosage: 480 MG, Q4W
     Dates: start: 20220615

REACTIONS (2)
  - Mass excision [Recovered/Resolved]
  - Neck mass [Recovered/Resolved]

NARRATIVE: CASE EVENT DATE: 20230501
